FAERS Safety Report 8546656-3 (Version None)
Quarter: 2012Q3

REPORT INFORMATION
  Report Type: 
  Country: None (occurrence: None)
  Receive Date: 20120727
  Receipt Date: 20120330
  Transmission Date: 20120928
  Serious: No
  Sender: FDA-Public Use
  Company Number: US-ASTRAZENECA-2012SE04902

PATIENT
  Age: 30 Year
  Sex: Female
  Weight: 74.4 kg

DRUGS (5)
  1. SEROQUEL XR [Suspect]
     Indication: DEPRESSION
     Route: 048
     Dates: start: 20100101
  2. PAXIL [Suspect]
     Route: 065
     Dates: start: 20110301, end: 20110101
  3. SEROQUEL XR [Suspect]
     Indication: ANXIETY
     Route: 048
     Dates: start: 20100101
  4. SEROQUEL XR [Suspect]
     Route: 048
     Dates: start: 20100101
  5. SEROQUEL XR [Suspect]
     Route: 048
     Dates: start: 20100101

REACTIONS (14)
  - FEELING ABNORMAL [None]
  - INTENTIONAL DRUG MISUSE [None]
  - PRURITUS [None]
  - GASTROOESOPHAGEAL REFLUX DISEASE [None]
  - BLEPHAROSPASM [None]
  - ALLERGIC RESPIRATORY SYMPTOM [None]
  - INSOMNIA [None]
  - ABDOMINAL PAIN UPPER [None]
  - WRONG TECHNIQUE IN DRUG USAGE PROCESS [None]
  - EATING DISORDER [None]
  - DRUG WITHDRAWAL SYNDROME [None]
  - OFF LABEL USE [None]
  - ADVERSE EVENT [None]
  - RASH [None]
